FAERS Safety Report 4576484-5 (Version None)
Quarter: 2005Q1

REPORT INFORMATION
  Report Type: 
  Country: None (occurrence: None)
  Receive Date: 20050209
  Receipt Date: 20050201
  Transmission Date: 20050727
  Serious: Yes (Life-Threatening, Hospitalization, Disabling)
  Sender: FDA-Public Use
  Company Number: US-MERCK-0502USA00185

PATIENT
  Sex: Female

DRUGS (6)
  1. VIOXX [Suspect]
     Route: 048
     Dates: start: 20000801, end: 20010201
  2. ATACAND [Concomitant]
     Route: 065
  3. NORVASC [Concomitant]
     Route: 065
  4. LASIX [Concomitant]
     Route: 065
  5. PROVERA [Concomitant]
     Route: 065
  6. ESTRADIOL [Concomitant]
     Route: 065

REACTIONS (2)
  - MYOCARDIAL INFARCTION [None]
  - PULMONARY OEDEMA [None]
